FAERS Safety Report 24539193 (Version 1)
Quarter: 2024Q4

REPORT INFORMATION
  Report Type: Spontaneous
  Country: US (occurrence: None)
  Receive Date: 20241022
  Receipt Date: 20241022
  Transmission Date: 20250115
  Serious: No
  Sender: Public
  Company Number: None

PATIENT
  Age: 68 Year
  Sex: Male

DRUGS (1)
  1. HADLIMA [Suspect]
     Active Substance: ADALIMUMAB-BWWD
     Indication: Irritable bowel syndrome
     Dates: start: 20240307, end: 20240520

REACTIONS (3)
  - Diarrhoea [None]
  - Neuropathy peripheral [None]
  - Night sweats [None]

NARRATIVE: CASE EVENT DATE: 20240520
